FAERS Safety Report 7267401-8 (Version None)
Quarter: 2011Q1

REPORT INFORMATION
  Report Type: 
  Country: None (occurrence: None)
  Receive Date: 20110201
  Receipt Date: 20101014
  Transmission Date: 20110831
  Serious: No
  Sender: FDA-Public Use
  Company Number: A0886868A

PATIENT
  Age: 61 Year
  Sex: Male

DRUGS (3)
  1. MULTAQ [Suspect]
     Indication: ATRIAL FIBRILLATION
     Dosage: 400MG TWICE PER DAY
     Route: 048
     Dates: start: 20100922
  2. ARIXTRA [Suspect]
     Route: 065
  3. WARFARIN [Suspect]
     Route: 065

REACTIONS (2)
  - EJACULATION FAILURE [None]
  - INJECTION SITE HAEMATOMA [None]
